FAERS Safety Report 5764894-X (Version None)
Quarter: 2008Q2

REPORT INFORMATION
  Report Type: 
  Country: None (occurrence: None)
  Receive Date: 20080611
  Receipt Date: 20070709
  Transmission Date: 20081010
  Serious: No
  Sender: FDA-Public Use
  Company Number: A0720763A

PATIENT
  Age: 82 Year
  Sex: Female

DRUGS (9)
  1. AXID [Suspect]
     Dosage: 300MG PER DAY
     Route: 048
  2. AXID [Suspect]
     Dosage: 600MG PER DAY
     Route: 048
     Dates: start: 20070101
  3. CORGARD [Concomitant]
     Indication: DRUG USE FOR UNKNOWN INDICATION
  4. ATIVAN [Concomitant]
     Indication: DRUG USE FOR UNKNOWN INDICATION
  5. HYDROCHLOROTHIAZIDE [Concomitant]
     Indication: DRUG USE FOR UNKNOWN INDICATION
  6. MICRO-K [Concomitant]
     Indication: DRUG USE FOR UNKNOWN INDICATION
  7. CARAFATE [Concomitant]
     Indication: DRUG USE FOR UNKNOWN INDICATION
  8. TYLENOL [Concomitant]
     Indication: DRUG USE FOR UNKNOWN INDICATION
     Route: 048
  9. TUMS [Concomitant]
     Indication: DRUG USE FOR UNKNOWN INDICATION

REACTIONS (2)
  - DENTAL CARIES [None]
  - TOOTH DISORDER [None]
